FAERS Safety Report 7279818-6 (Version None)
Quarter: 2011Q1

REPORT INFORMATION
  Report Type: 
  Country: None (occurrence: None)
  Receive Date: 20110208
  Receipt Date: 20110125
  Transmission Date: 20110831
  Serious: No
  Sender: FDA-Public Use
  Company Number: US-BAYER-2011-008826

PATIENT
  Sex: Female

DRUGS (1)
  1. MIRENA [Suspect]
     Dosage: 20 ?G, ONCE

REACTIONS (5)
  - SMEAR CERVIX ABNORMAL [None]
  - HUMAN PAPILLOMA VIRUS TEST POSITIVE [None]
  - IRRITABILITY [None]
  - CRYING [None]
  - AFFECT LABILITY [None]
